FAERS Safety Report 8365269-X (Version None)
Quarter: 2012Q1

REPORT INFORMATION
  Report Type: 
  Country: None (occurrence: None)
  Receive Date: 20120323
  Receipt Date: 20110617
  Transmission Date: 20120608
  Serious: Yes (Other)
  Sender: FDA-Public Use
  Company Number: 163-21880-11041760

PATIENT
  Age: 59 Year
  Sex: Female

DRUGS (3)
  1. REVLIMID [Suspect]
     Indication: MULTIPLE MYELOMA
     Dosage: 10 MG, DAILY FOR 21 DAYS, PO
     Route: 048
     Dates: start: 20070207, end: 20100823
  2. REVLIMID [Suspect]
     Indication: MULTIPLE MYELOMA
     Dosage: 10 MG, DAILY FOR 21 DAYS, PO
     Route: 048
     Dates: start: 20110310
  3. REVLIMID [Suspect]

REACTIONS (8)
  - LYMPHADENOPATHY [None]
  - PAIN [None]
  - BALANCE DISORDER [None]
  - BLISTER [None]
  - DIZZINESS [None]
  - APHONIA [None]
  - RASH PRURITIC [None]
  - CHILLS [None]
